FAERS Safety Report 11366789 (Version 1)
Quarter: 2015Q3

REPORT INFORMATION
  Report Type: Spontaneous
  Country: US (occurrence: US)
  Receive Date: 20150811
  Receipt Date: 20150811
  Transmission Date: 20151125
  Serious: No
  Sender: FDA-Public Use
  Company Number: US-ELI_LILLY_AND_COMPANY-US201107002602

PATIENT
  Age: 52 Year
  Sex: Male

DRUGS (2)
  1. AXIRON [Suspect]
     Active Substance: TESTOSTERONE
     Indication: BLOOD TESTOSTERONE DECREASED
     Dosage: 60 MG, (30 MG UNDER EACH ARM) EVERY 2 DAYS
     Dates: start: 20110518
  2. ANDROGEL [Concomitant]
     Active Substance: TESTOSTERONE
     Dosage: EVERY 2 DAYS

REACTIONS (2)
  - Rash [Unknown]
  - Inappropriate schedule of drug administration [Unknown]

NARRATIVE: CASE EVENT DATE: 20110525
